FAERS Safety Report 21175655 (Version 1)
Quarter: 2022Q3

REPORT INFORMATION
  Report Type: Report from Study
  Country: US (occurrence: US)
  Receive Date: 20220805
  Receipt Date: 20220805
  Transmission Date: 20221026
  Serious: Yes (Other)
  Sender: FDA-Public Use
  Company Number: US-NOVARTISPH-NVSC2022US174677

PATIENT
  Age: 65 Year
  Sex: Female
  Weight: 76.2 kg

DRUGS (1)
  1. ENTRESTO [Suspect]
     Active Substance: SACUBITRIL\VALSARTAN
     Indication: Cardiac failure chronic
     Dosage: UNK UNK, BID
     Route: 048
     Dates: start: 2019

REACTIONS (5)
  - Pneumonia [Unknown]
  - Pyrexia [Recovered/Resolved]
  - Asthma [Unknown]
  - Cough [Not Recovered/Not Resolved]
  - Dysphonia [Recovering/Resolving]

NARRATIVE: CASE EVENT DATE: 20220701
